FAERS Safety Report 24787319 (Version 1)
Quarter: 2024Q4

REPORT INFORMATION
  Report Type: Spontaneous
  Country: TW (occurrence: TW)
  Receive Date: 20241230
  Receipt Date: 20241230
  Transmission Date: 20250115
  Serious: Yes (Death, Other)
  Sender: SANOFI AVENTIS
  Company Number: TW-SA-2024SA382964

PATIENT
  Age: 63 Year
  Sex: Male

DRUGS (1)
  1. FABRAZYME [Suspect]
     Active Substance: AGALSIDASE BETA
     Indication: Fabry^s disease
     Dosage: 70 MG (1 MG/1KG, 35 MG/VIAL, 2 VIALS), QOW
     Route: 041
     Dates: end: 20241214

REACTIONS (4)
  - Myocardial infarction [Fatal]
  - Dyspnoea [Fatal]
  - Discomfort [Fatal]
  - Condition aggravated [Fatal]

NARRATIVE: CASE EVENT DATE: 20241221
